FAERS Safety Report 5221372-4 (Version None)
Quarter: 2007Q1

REPORT INFORMATION
  Report Type: 
  Country: None (occurrence: None)
  Receive Date: 20061201
  Receipt Date: 20060707
  Transmission Date: 20070707
  Serious: No
  Sender: FDA-Public Use
  Company Number: 2006PV017103

PATIENT
  Age: 55 Year
  Sex: Female
  Weight: 90.7194 kg

DRUGS (12)
  1. BYETTA [Suspect]
     Indication: DIABETES MELLITUS NON-INSULIN-DEPENDENT
     Dosage: SEE IMAGE
     Route: 058
     Dates: start: 20060306, end: 20060313
  2. BYETTA [Suspect]
     Indication: DIABETES MELLITUS NON-INSULIN-DEPENDENT
     Dosage: SEE IMAGE
     Route: 058
     Dates: start: 20060706, end: 20060706
  3. GLUCOVANCE [Concomitant]
  4. ATENOLOL [Concomitant]
  5. LASIX [Concomitant]
  6. COZAAR [Concomitant]
  7. ASPIRIN [Concomitant]
  8. PREMARIN [Concomitant]
  9. SPIRONOLACTONE [Concomitant]
  10. ZETIA [Concomitant]
  11. CENTRUM [Concomitant]
  12. GLUCOVANCE [Concomitant]

REACTIONS (2)
  - BLOOD GLUCOSE INCREASED [None]
  - VIRAL INFECTION [None]
